FAERS Safety Report 18576233 (Version 1)
Quarter: 2020Q4

REPORT INFORMATION
  Report Type: Spontaneous
  Country: US (occurrence: US)
  Receive Date: 20201203
  Receipt Date: 20201203
  Transmission Date: 20210114
  Serious: No
  Sender: FDA-Public Use
  Company Number: US-BIOGEN-2020BI00951797

PATIENT
  Sex: Male

DRUGS (1)
  1. TYSABRI [Suspect]
     Active Substance: NATALIZUMAB
     Indication: MULTIPLE SCLEROSIS
     Route: 042
     Dates: start: 20190925, end: 20200313

REACTIONS (7)
  - Weight gain poor [Unknown]
  - Weight decreased [Unknown]
  - Muscle tightness [Unknown]
  - Nausea [Unknown]
  - Agraphia [Unknown]
  - Gastric disorder [Unknown]
  - Headache [Unknown]
